FAERS Safety Report 23186594 (Version 1)
Quarter: 2023Q4

REPORT INFORMATION
  Report Type: Spontaneous
  Country: US (occurrence: US)
  Receive Date: 20231115
  Receipt Date: 20231115
  Transmission Date: 20240109
  Serious: No
  Sender: FDA-Public Use
  Company Number: US-SA-SAC20231108001146

PATIENT
  Age: 9 Year
  Sex: Male

DRUGS (2)
  1. ALPROLIX [Suspect]
     Active Substance: EFTRENONACOG ALFA
     Indication: Factor IX deficiency
     Dosage: UNK UNK, QW
     Route: 040
  2. ALPROLIX [Suspect]
     Active Substance: EFTRENONACOG ALFA
     Indication: Factor IX deficiency
     Dosage: UNK UNK, QW
     Route: 040

REACTIONS (4)
  - Fall [Recovered/Resolved]
  - Traumatic haemorrhage [Recovered/Resolved]
  - Musculoskeletal discomfort [Not Recovered/Not Resolved]
  - Joint effusion [Unknown]

NARRATIVE: CASE EVENT DATE: 20230101
